FAERS Safety Report 13046303 (Version 1)
Quarter: 2016Q4

REPORT INFORMATION
  Report Type: Spontaneous
  Country: US (occurrence: US)
  Receive Date: 20161220
  Receipt Date: 20161220
  Transmission Date: 20170207
  Serious: Yes (Other)
  Sender: FDA-Public Use
  Company Number: US-GLAXOSMITHKLINE-US2016GSK187867

PATIENT
  Age: 64 Year
  Sex: Female

DRUGS (1)
  1. CAMBIA [Suspect]
     Active Substance: DICLOFENAC POTASSIUM
     Indication: PRODUCT USED FOR UNKNOWN INDICATION
     Dosage: 50 MG,1 PACKET 1 TIME AS NEEDED
     Route: 048
     Dates: start: 20160620

REACTIONS (3)
  - Bronchitis [Unknown]
  - Upper respiratory tract infection [Unknown]
  - Pneumonia [Unknown]
